FAERS Safety Report 24717946 (Version 1)
Quarter: 2024Q4

REPORT INFORMATION
  Report Type: Spontaneous
  Country: TW (occurrence: TW)
  Receive Date: 20241210
  Receipt Date: 20241210
  Transmission Date: 20250115
  Serious: Yes (Other)
  Sender: ELI LILLY AND COMPANY
  Company Number: TW-ELI_LILLY_AND_COMPANY-TW202411018876

PATIENT
  Age: 48 Year
  Sex: Male

DRUGS (5)
  1. SELPERCATINIB [Suspect]
     Active Substance: SELPERCATINIB
     Indication: Lung adenocarcinoma
     Dosage: 80 MG, BID
     Route: 065
     Dates: start: 20221102, end: 20231103
  2. SELPERCATINIB [Suspect]
     Active Substance: SELPERCATINIB
     Indication: Lung neoplasm malignant
  3. PEMETREXED [Suspect]
     Active Substance: PEMETREXED
     Indication: Lung adenocarcinoma
     Dosage: UNK, CYCLICAL
     Route: 065
  4. PEMETREXED [Suspect]
     Active Substance: PEMETREXED
     Indication: Lung neoplasm malignant
     Dosage: UNK, CYCLICAL
     Route: 065
  5. CISPLATIN [Concomitant]
     Active Substance: CISPLATIN
     Indication: Lung adenocarcinoma
     Dosage: UNK, CYCLICAL
     Route: 065
     Dates: start: 20221213

REACTIONS (2)
  - Ascites [Not Recovered/Not Resolved]
  - Chylothorax [Unknown]

NARRATIVE: CASE EVENT DATE: 20230731
